FAERS Safety Report 5009020-X (Version None)
Quarter: 2006Q2

REPORT INFORMATION
  Report Type: 
  Country: None (occurrence: None)
  Receive Date: 20060518
  Receipt Date: 20060505
  Transmission Date: 20061013
  Serious: Yes (Other)
  Sender: FDA-Public Use
  Company Number: FRWYE377409FEB06

PATIENT
  Age: 84 Year
  Sex: Female

DRUGS (10)
  1. EFFEXOR XR [Suspect]
     Dosage: 75 MG 1X PER 1 DAY
     Route: 048
     Dates: start: 20040521
  2. COLECALCIFEROL [Concomitant]
  3. CALCIUM CARBONATE [Concomitant]
  4. FORLAX (MACROGOL) [Concomitant]
  5. EFFERALGAN CODEINE (PARACETAMOL/CODEINE PHOSPHATE) [Concomitant]
  6. LEXOMIL (BROMAZEPAM) [Concomitant]
  7. INIPOMP (PANTOPRAZOLE) [Concomitant]
  8. POTASSIUM CHLORIDE [Concomitant]
  9. MICROLAX (SODIUM CITRATE/SODIUM LAURYL SULFOACETATE) [Concomitant]
  10. ESIDRIX [Concomitant]

REACTIONS (4)
  - ANTIDEPRESSANT DRUG CLEARANCE DECREASED [None]
  - HYPERTENSIVE CRISIS [None]
  - HYPOKALAEMIA [None]
  - RENAL FAILURE ACUTE [None]
